FAERS Safety Report 12995971 (Version 2)
Quarter: 2016Q4

REPORT INFORMATION
  Report Type: Spontaneous
  Country: FR (occurrence: FR)
  Receive Date: 20161202
  Receipt Date: 20161215
  Transmission Date: 20170207
  Serious: Yes (Death, Hospitalization, Other)
  Sender: FDA-Public Use
  Company Number: FR-ABBVIE-16P-056-1798790-00

PATIENT
  Age: 34 Year
  Sex: Male

DRUGS (13)
  1. QUETIAPINE FUMARATE (QUETIAPINE FUMARATE) [Suspect]
     Active Substance: QUETIAPINE FUMARATE
     Indication: BIPOLAR DISORDER
  2. VALPROIC ACID. [Suspect]
     Active Substance: VALPROIC ACID
     Indication: BIPOLAR DISORDER
     Route: 065
  3. DIAZEPAM (DIAZEPAM) [Suspect]
     Active Substance: DIAZEPAM
     Indication: BIPOLAR DISORDER
     Route: 065
  4. LOXAPINE. [Suspect]
     Active Substance: LOXAPINE
     Indication: BIPOLAR DISORDER
     Route: 048
     Dates: start: 20120614
  5. LOXAPINE. [Suspect]
     Active Substance: LOXAPINE
     Indication: EXTRAPYRAMIDAL DISORDER
     Route: 048
  6. QUETIAPINE FUMARATE (QUETIAPINE FUMARATE) [Suspect]
     Active Substance: QUETIAPINE FUMARATE
     Indication: EXTRAPYRAMIDAL DISORDER
  7. TROPATEPINE (TROPATEPINE) [Suspect]
     Active Substance: TROPATEPINE
     Indication: EXTRAPYRAMIDAL DISORDER
  8. LOXAPINE. [Suspect]
     Active Substance: LOXAPINE
     Route: 030
     Dates: start: 20120625
  9. QUETIAPINE FUMARATE (QUETIAPINE FUMARATE) [Suspect]
     Active Substance: QUETIAPINE FUMARATE
     Indication: AGITATION
     Route: 065
     Dates: start: 20120605
  10. TROPATEPINE (TROPATEPINE) [Suspect]
     Active Substance: TROPATEPINE
     Indication: AGITATION
     Route: 065
     Dates: start: 20120605
  11. TROPATEPINE (TROPATEPINE) [Suspect]
     Active Substance: TROPATEPINE
     Indication: BIPOLAR DISORDER
  12. QUETIAPINE FUMARATE (QUETIAPINE FUMARATE) [Suspect]
     Active Substance: QUETIAPINE FUMARATE
     Indication: AGGRESSION
  13. TROPATEPINE (TROPATEPINE) [Suspect]
     Active Substance: TROPATEPINE
     Indication: AGGRESSION

REACTIONS (34)
  - Condition aggravated [Fatal]
  - Acute kidney injury [Fatal]
  - Haemorrhage [Fatal]
  - Blood pressure systolic increased [Fatal]
  - Vomiting [Fatal]
  - Large intestine perforation [Fatal]
  - Multiple organ dysfunction syndrome [Fatal]
  - Systemic bacterial infection [Fatal]
  - Constipation [Fatal]
  - Hyperhidrosis [Fatal]
  - Tachycardia [Fatal]
  - Sepsis [Fatal]
  - Systemic mycosis [Fatal]
  - Skin discolouration [Fatal]
  - Intestinal ischaemia [Fatal]
  - Gastrointestinal disorder [Fatal]
  - Malaise [Fatal]
  - Metabolic acidosis [Fatal]
  - Stoma site ischaemia [Fatal]
  - Lung disorder [Fatal]
  - Colitis ischaemic [Fatal]
  - Renal failure [Fatal]
  - Subileus [Fatal]
  - Septic shock [Fatal]
  - Staphylococcal bacteraemia [Fatal]
  - Hypothermia [Fatal]
  - Hepatic enzyme increased [Fatal]
  - Cardiac arrest [Fatal]
  - Gastrointestinal stoma necrosis [Fatal]
  - Gastric haemorrhage [Fatal]
  - Fungaemia [Fatal]
  - Abdominal pain [Fatal]
  - Gastrointestinal necrosis [Fatal]
  - Peripheral coldness [Fatal]

NARRATIVE: CASE EVENT DATE: 20120623
